FAERS Safety Report 7400248-8 (Version None)
Quarter: 2011Q2

REPORT INFORMATION
  Report Type: 
  Country: None (occurrence: None)
  Receive Date: 20110407
  Receipt Date: 20110330
  Transmission Date: 20111010
  Serious: Yes (Hospitalization)
  Sender: FDA-Public Use
  Company Number: JP-ACTELION-A-CH2010-40027

PATIENT
  Sex: Female
  Weight: 49 kg

DRUGS (9)
  1. LANSOPRAZOLE [Concomitant]
  2. TRACLEER [Suspect]
     Dosage: 62.5 MG, QD
     Route: 048
     Dates: start: 20090327
  3. TOCOPHERYL ACETATE [Concomitant]
  4. FEXOFENADINE HCL [Concomitant]
  5. LAFUTIDINE [Concomitant]
  6. BERAPROST SODIUM [Concomitant]
  7. ASCORBIC ACID W/CALCIUM [Concomitant]
  8. TORSEMIDE [Concomitant]
  9. TRACLEER [Suspect]
     Indication: PULMONARY ARTERIAL HYPERTENSION
     Dosage: 62.5 MG, BID
     Route: 048
     Dates: start: 20070907, end: 20090326

REACTIONS (4)
  - DIZZINESS [None]
  - ARTERIOSCLEROSIS OBLITERANS [None]
  - SCLERODERMA [None]
  - CONDITION AGGRAVATED [None]
